FAERS Safety Report 6194824-0 (Version None)
Quarter: 2009Q2

REPORT INFORMATION
  Report Type: 
  Country: None (occurrence: None)
  Receive Date: 20090519
  Receipt Date: 20090428
  Transmission Date: 20091009
  Serious: Yes (Disabling, Other)
  Sender: FDA-Public Use
  Company Number: US-PFIZER INC-2009206015

PATIENT
  Sex: Male

DRUGS (1)
  1. XALATAN [Suspect]
     Dosage: UNK

REACTIONS (7)
  - DISABILITY [None]
  - DISTURBANCE IN ATTENTION [None]
  - HEARING IMPAIRED [None]
  - INCORRECT DOSE ADMINISTERED [None]
  - MEMORY IMPAIRMENT [None]
  - PAIN IN EXTREMITY [None]
  - READING DISORDER [None]
